FAERS Safety Report 8406950-3 (Version None)
Quarter: 2012Q2

REPORT INFORMATION
  Report Type: 
  Country: None (occurrence: None)
  Receive Date: 20120529
  Receipt Date: 20120514
  Transmission Date: 20120825
  Serious: No
  Sender: FDA-Public Use
  Company Number: 2012SP026439

PATIENT
  Age: 4 Month
  Sex: Male

DRUGS (1)
  1. CEDAX [Suspect]
     Indication: URINARY TRACT INFECTION
     Dosage: UNKNOWN
     Dates: start: 20120510, end: 20120514

REACTIONS (3)
  - FATIGUE [None]
  - URTICARIA [None]
  - INCORRECT STORAGE OF DRUG [None]
